FAERS Safety Report 4652482-8 (Version None)
Quarter: 2005Q2

REPORT INFORMATION
  Report Type: 
  Country: None (occurrence: None)
  Receive Date: 20050502
  Receipt Date: 20050421
  Transmission Date: 20051028
  Serious: Yes (Other)
  Sender: FDA-Public Use
  Company Number: 2005-03-1490

PATIENT
  Age: 58 Year
  Sex: Female

DRUGS (11)
  1. INTRON A [Suspect]
     Indication: HEPATITIS C
     Dosage: SEE IMAGE, INTRAMUSCULAR
     Route: 030
     Dates: start: 20040401, end: 20040801
  2. INTRON A [Suspect]
     Indication: HEPATITIS C
     Dosage: SEE IMAGE, INTRAMUSCULAR
     Route: 030
     Dates: start: 20040101, end: 20041110
  3. INTRON A [Suspect]
     Indication: HEPATITIS C
     Dosage: SEE IMAGE, INTRAMUSCULAR
     Route: 030
     Dates: start: 20040501
  4. INTRON A [Suspect]
     Indication: HEPATITIS C
     Dosage: SEE IMAGE, INTRAMUSCULAR
     Route: 030
     Dates: start: 20050222
  5. REBETOL [Suspect]
     Indication: HEPATITIS C
     Dosage: 400 MG* ORAL
     Route: 048
     Dates: start: 20040501, end: 20041110
  6. REBETOL [Suspect]
     Indication: HEPATITIS C
     Dosage: 400 MG* ORAL
     Route: 048
     Dates: start: 20040501
  7. REBETOL [Suspect]
     Indication: HEPATITIS C
     Dosage: 400 MG* ORAL
     Route: 048
     Dates: start: 20050222
  8. PEGASYS [Suspect]
     Indication: HEPATITIS C
     Dates: start: 20040801
  9. PROGRAF TABLETS [Concomitant]
  10. MEDROL [Concomitant]
  11. OMEPRAL (OMEPRAZOLE) TABLETS [Concomitant]

REACTIONS (6)
  - DIABETIC RETINOPATHY [None]
  - PYREXIA [None]
  - RETINAL HAEMORRHAGE [None]
  - RETINOPATHY [None]
  - VISION BLURRED [None]
  - VISUAL ACUITY REDUCED [None]
